FAERS Safety Report 13519584 (Version 2)
Quarter: 2017Q2

REPORT INFORMATION
  Report Type: Spontaneous
  Country: US (occurrence: US)
  Receive Date: 20170505
  Receipt Date: 20170516
  Transmission Date: 20170830
  Serious: Yes (Other)
  Sender: FDA-Public Use
  Company Number: US-JAZZ-2017-US-005334

PATIENT
  Age: 54 Year
  Sex: Male

DRUGS (24)
  1. CLARITIN [Concomitant]
     Active Substance: LORATADINE
  2. BUPROPION HCL [Concomitant]
     Active Substance: BUPROPION HYDROCHLORIDE
  3. CARAFATE [Concomitant]
     Active Substance: SUCRALFATE
  4. CITRACAL + D                       /01606701/ [Concomitant]
  5. FLONASE                            /00908302/ [Concomitant]
     Active Substance: MOMETASONE FUROATE
  6. OMEPRAZOLE. [Concomitant]
     Active Substance: OMEPRAZOLE
  7. VITAMIN D3 [Concomitant]
     Active Substance: CHOLECALCIFEROL
  8. XYREM [Suspect]
     Active Substance: SODIUM OXYBATE
     Indication: NARCOLEPSY
     Dosage: 2.25G, BID
     Route: 048
     Dates: start: 201512, end: 201601
  9. IBUPROFEN. [Concomitant]
     Active Substance: IBUPROFEN
  10. FENTANYL. [Concomitant]
     Active Substance: FENTANYL
  11. OXYCODONE HYDROCHLORIDE. [Concomitant]
     Active Substance: OXYCODONE HYDROCHLORIDE
  12. XYREM [Suspect]
     Active Substance: SODIUM OXYBATE
     Dosage: 3G, BID
     Route: 048
     Dates: start: 201703
  13. ERYTHROMYCIN. [Concomitant]
     Active Substance: ERYTHROMYCIN
  14. LIDOCAINE. [Concomitant]
     Active Substance: LIDOCAINE
  15. IMMUNOGLOBULIN                     /00025201/ [Concomitant]
     Active Substance: HUMAN IMMUNOGLOBULIN G
  16. POTASSIUM CITRATE. [Concomitant]
     Active Substance: POTASSIUM CITRATE
  17. XYREM [Suspect]
     Active Substance: SODIUM OXYBATE
     Dosage: DOSE ADJUSTMENT
     Route: 048
     Dates: start: 201601, end: 201703
  18. CLONAZEPAM. [Concomitant]
     Active Substance: CLONAZEPAM
  19. MODAFINIL. [Concomitant]
     Active Substance: MODAFINIL
  20. NORTRIPTYLINE HCL [Concomitant]
     Active Substance: NORTRIPTYLINE HYDROCHLORIDE
  21. CIALIS [Concomitant]
     Active Substance: TADALAFIL
  22. METFORMIN HYDROCHLORIDE. [Concomitant]
     Active Substance: METFORMIN HYDROCHLORIDE
  23. GABAPENTIN. [Concomitant]
     Active Substance: GABAPENTIN
  24. LISINOPRIL. [Concomitant]
     Active Substance: LISINOPRIL

REACTIONS (6)
  - Acne [Unknown]
  - Malaise [Unknown]
  - Urinary tract infection [Unknown]
  - Carpal tunnel syndrome [Unknown]
  - Seasonal affective disorder [Unknown]
  - Prostate infection [Not Recovered/Not Resolved]

NARRATIVE: CASE EVENT DATE: 20170424
